FAERS Safety Report 18020660 (Version 1)
Quarter: 2020Q3

REPORT INFORMATION
  Report Type: Spontaneous
  Country: PL (occurrence: PL)
  Receive Date: 20200714
  Receipt Date: 20200714
  Transmission Date: 20201103
  Serious: Yes (Other)
  Sender: FDA-Public Use
  Company Number: PL-PFIZER INC-2020263702

PATIENT
  Age: 65 Year
  Sex: Female
  Weight: 45 kg

DRUGS (1)
  1. SUTENT [Suspect]
     Active Substance: SUNITINIB MALATE
     Indication: RENAL CELL CARCINOMA
     Dosage: 50 MG, 1X/DAY
     Route: 048

REACTIONS (25)
  - Palpitations [Unknown]
  - Diarrhoea [Unknown]
  - Eyelid oedema [Unknown]
  - Dyspepsia [Unknown]
  - Neutrophilia [Unknown]
  - Hyperglycaemia [Unknown]
  - Face oedema [Unknown]
  - Aspartate aminotransferase increased [Unknown]
  - Lymphocytosis [Unknown]
  - Headache [Unknown]
  - Somnolence [Unknown]
  - Vomiting [Unknown]
  - Hyperthyroidism [Unknown]
  - Dizziness [Unknown]
  - Anaemia [Unknown]
  - Neutropenia [Unknown]
  - Musculoskeletal pain [Unknown]
  - Stomatitis [Unknown]
  - Constipation [Unknown]
  - Blood pressure increased [Unknown]
  - Leukocytosis [Unknown]
  - Palmar-plantar erythrodysaesthesia syndrome [Unknown]
  - Chronic kidney disease [Unknown]
  - Tachycardia [Unknown]
  - Thrombocytosis [Unknown]
